FAERS Safety Report 5419463-8 (Version None)
Quarter: 2007Q3

REPORT INFORMATION
  Report Type: 
  Country: None (occurrence: None)
  Receive Date: 20070820
  Receipt Date: 20070813
  Transmission Date: 20080115
  Serious: Yes (Hospitalization)
  Sender: FDA-Public Use
  Company Number: B0483690A

PATIENT
  Age: 82 Year
  Sex: Male

DRUGS (6)
  1. AUGMENTIN '125' [Suspect]
     Dosage: 1G THREE TIMES PER DAY
     Route: 065
  2. PLAVIX [Concomitant]
     Indication: CEREBROVASCULAR ACCIDENT
     Dosage: 75MG PER DAY
     Route: 048
  3. TAHOR [Concomitant]
     Dosage: 20MG PER DAY
     Route: 048
  4. COVERSYL [Concomitant]
     Indication: HYPERTENSION
     Dosage: 4MG PER DAY
     Route: 048
  5. LANTUS [Concomitant]
     Dosage: 8IU PER DAY
     Route: 065
  6. HUMALOG [Concomitant]
     Route: 065

REACTIONS (4)
  - HAEMATOMA [None]
  - HAEMATURIA [None]
  - PYREXIA [None]
  - SKIN DISORDER [None]
